FAERS Safety Report 22749273 (Version 3)
Quarter: 2024Q2

REPORT INFORMATION
  Report Type: Spontaneous
  Country: US (occurrence: US)
  Receive Date: 20230725
  Receipt Date: 20240416
  Transmission Date: 20240716
  Serious: Yes (Other)
  Sender: FDA-Public Use
  Company Number: US-PFIZER INC-PV202300124922

PATIENT
  Age: 89 Year
  Sex: Female
  Weight: 56.236 kg

DRUGS (1)
  1. XELJANZ XR [Suspect]
     Active Substance: TOFACITINIB CITRATE
     Dosage: 11 MG

REACTIONS (4)
  - Deafness [Unknown]
  - Hypoacusis [Unknown]
  - Herpes zoster [Unknown]
  - Nasal injury [Unknown]
